FAERS Safety Report 8594032-X (Version None)
Quarter: 2012Q3

REPORT INFORMATION
  Report Type: 
  Country: None (occurrence: None)
  Receive Date: 20120814
  Receipt Date: 20120806
  Transmission Date: 20120928
  Serious: Yes (Hospitalization)
  Sender: FDA-Public Use
  Company Number: US-B.I. PHARMACEUTICALS,INC./RIDGEFIELD-2012-BP-17656BP

PATIENT
  Sex: Female

DRUGS (8)
  1. PRADAXA [Suspect]
     Indication: ATRIAL FIBRILLATION
     Dosage: 300 MG
     Route: 048
     Dates: start: 20110101, end: 20120601
  2. INDERAL [Concomitant]
     Indication: CARDIAC DISORDER
     Dosage: 120 MG
     Route: 048
     Dates: start: 19900101
  3. SIMVASTATIN [Concomitant]
     Indication: BLOOD CHOLESTEROL
     Dosage: 20 MG
     Route: 048
     Dates: start: 20120601
  4. MAXZIDE [Concomitant]
     Indication: JOINT SWELLING
     Route: 048
     Dates: start: 19900101
  5. PRADAXA [Suspect]
     Dosage: 150 MG
     Route: 048
     Dates: start: 20120601
  6. QVAR 40 [Concomitant]
     Indication: RESPIRATORY DISORDER
     Dosage: 160 MCG
     Route: 055
     Dates: start: 20110101
  7. DIGOXIN [Concomitant]
     Indication: CARDIAC DISORDER
     Dosage: 0.125 MG
     Route: 048
     Dates: start: 19900101
  8. DIOVAN [Concomitant]
     Dosage: 80 MG
     Route: 048
     Dates: start: 20120601

REACTIONS (4)
  - BLOOD CHOLESTEROL INCREASED [None]
  - TRANSIENT ISCHAEMIC ATTACK [None]
  - HAEMATOMA [None]
  - RESPIRATORY DISORDER [None]
